FAERS Safety Report 9836630 (Version 1)
Quarter: 2014Q1

REPORT INFORMATION
  Report Type: Report from Study
  Country: CA (occurrence: CA)
  Receive Date: 20140123
  Receipt Date: 20140123
  Transmission Date: 20141002
  Serious: Yes (Other)
  Sender: FDA-Public Use
  Company Number: CA-JNJFOC-20140107559

PATIENT
  Sex: Male
  Weight: 108.86 kg

DRUGS (1)
  1. REMICADE [Suspect]
     Indication: CROHN^S DISEASE
     Dosage: AUG OR SEP-2013
     Route: 042
     Dates: start: 2013

REACTIONS (3)
  - Heart rate irregular [Unknown]
  - Aortic disorder [Unknown]
  - Weight decreased [Unknown]
